FAERS Safety Report 10583925 (Version 2)
Quarter: 2014Q4

REPORT INFORMATION
  Report Type: Spontaneous
  Country: US (occurrence: US)
  Receive Date: 20141114
  Receipt Date: 20141120
  Transmission Date: 20150529
  Serious: Yes (Other)
  Sender: FDA-Public Use
  Company Number: US-PFIZER INC-2014312907

PATIENT
  Age: 55 Year
  Sex: Female
  Weight: 64 kg

DRUGS (3)
  1. EFFEXOR XR [Suspect]
     Active Substance: VENLAFAXINE HYDROCHLORIDE
     Dosage: 300 MG, DAILY
     Route: 048
  2. EFFEXOR XR [Suspect]
     Active Substance: VENLAFAXINE HYDROCHLORIDE
     Dosage: UNK, ALTERNATE DAY
     Dates: start: 2001
  3. EFFEXOR XR [Suspect]
     Active Substance: VENLAFAXINE HYDROCHLORIDE
     Indication: PREMENSTRUAL SYNDROME
     Dosage: UNK
     Route: 048
     Dates: start: 2000

REACTIONS (8)
  - Dissociation [Unknown]
  - Drug ineffective for unapproved indication [Not Recovered/Not Resolved]
  - Road traffic accident [Unknown]
  - Vomiting projectile [Unknown]
  - Feeling abnormal [Unknown]
  - Decreased appetite [Unknown]
  - Major depression [Unknown]
  - Dizziness [Unknown]
